FAERS Safety Report 21510084 (Version 1)
Quarter: 2022Q4

REPORT INFORMATION
  Report Type: Other
  Country: US (occurrence: US)
  Receive Date: 20221026
  Receipt Date: 20221026
  Transmission Date: 20230113
  Serious: Yes (Hospitalization)
  Sender: FDA-Public Use
  Company Number: US-MAYNE PHARMA-2022MYN000462

PATIENT
  Sex: Female

DRUGS (1)
  1. CLOZAPINE [Suspect]
     Active Substance: CLOZAPINE
     Indication: Product used for unknown indication
     Dosage: 100 MG DAILY
     Route: 065
     Dates: end: 20220419

REACTIONS (4)
  - Seizure [Unknown]
  - Somnolence [Unknown]
  - Fall [Unknown]
  - Myocarditis [Unknown]
